FAERS Safety Report 19141065 (Version 3)
Quarter: 2022Q1

REPORT INFORMATION
  Report Type: Spontaneous
  Country: AT (occurrence: AT)
  Receive Date: 20210415
  Receipt Date: 20220223
  Transmission Date: 20220423
  Serious: Yes (Death, Other)
  Sender: FDA-Public Use
  Company Number: AT-GILEAD-2021-0524472

PATIENT
  Age: 53 Year
  Sex: Male
  Weight: 180.81 kg

DRUGS (1)
  1. YESCARTA [Suspect]
     Active Substance: AXICABTAGENE CILOLEUCEL
     Indication: Product used for unknown indication
     Dosage: UNK
     Route: 042
     Dates: start: 20210216

REACTIONS (2)
  - Disease progression [Fatal]
  - Treatment failure [Unknown]

NARRATIVE: CASE EVENT DATE: 20210511
